FAERS Safety Report 9729934 (Version 1)
Quarter: 2013Q4

REPORT INFORMATION
  Report Type: Report from Study
  Country: CA (occurrence: CA)
  Receive Date: 20131204
  Receipt Date: 20131204
  Transmission Date: 20140711
  Serious: Yes (Hospitalization, Other)
  Sender: FDA-Public Use
  Company Number: CA-ABBVIE-13P-028-1175326-00

PATIENT
  Age: 40 Year
  Sex: Female
  Weight: 61.29 kg

DRUGS (8)
  1. HUMIRA [Suspect]
     Indication: CROHN^S DISEASE
     Route: 058
     Dates: start: 20080831, end: 20121109
  2. HUMIRA [Suspect]
     Route: 058
  3. HUMIRA [Suspect]
     Route: 058
     Dates: start: 201311
  4. ELTROXIN [Concomitant]
     Indication: CROHN^S DISEASE
     Route: 048
     Dates: start: 1996
  5. VITAMIN B12 [Concomitant]
     Indication: CROHN^S DISEASE
     Route: 058
     Dates: start: 1999
  6. DEPO PROVERA [Concomitant]
     Indication: CONTRACEPTION
     Route: 058
     Dates: start: 2003
  7. GRAVOL [Concomitant]
     Indication: NAUSEA
     Dosage: UNIT DOSE: 50 TO 100MG, EVERY 4 HOURS
     Route: 048
     Dates: end: 1998
  8. GRAVOL [Concomitant]
     Indication: VOMITING

REACTIONS (16)
  - Obstruction [Recovered/Resolved]
  - Wound dehiscence [Recovered/Resolved]
  - Intestinal perforation [Recovered/Resolved]
  - Fistula [Not Recovered/Not Resolved]
  - Syncope [Recovered/Resolved]
  - Abdominal abscess [Recovered/Resolved]
  - Incision site infection [Recovered/Resolved]
  - Pulmonary oedema [Recovered/Resolved]
  - Injury associated with device [Unknown]
  - Intestinal haemorrhage [Recovered/Resolved]
  - Duodenal perforation [Recovered/Resolved]
  - Adhesion [Recovered/Resolved]
  - Adhesion [Unknown]
  - Gastrointestinal pain [Unknown]
  - Nausea [Unknown]
  - Vomiting [Unknown]
